FAERS Safety Report 8334708-2 (Version None)
Quarter: 2012Q2

REPORT INFORMATION
  Report Type: 
  Country: None (occurrence: None)
  Receive Date: 20120503
  Receipt Date: 20120427
  Transmission Date: 20120825
  Serious: Yes (Other)
  Sender: FDA-Public Use
  Company Number: BR-PFIZER INC-2012105161

PATIENT
  Age: 61 Year
  Sex: Female
  Weight: 54 kg

DRUGS (6)
  1. ATENOLOL [Concomitant]
  2. LYRICA [Suspect]
     Indication: NEURALGIA
     Dosage: 75 MG, 1X/DAY
     Route: 048
     Dates: end: 20120412
  3. INSULIN [Concomitant]
  4. METFORMIN [Concomitant]
  5. CLOPIDOGREL [Concomitant]
  6. RASILEZ [Concomitant]

REACTIONS (8)
  - SOMNOLENCE [None]
  - CONFUSIONAL STATE [None]
  - VOMITING [None]
  - VISION BLURRED [None]
  - DRUG ADMINISTRATION ERROR [None]
  - BLOOD GLUCOSE FLUCTUATION [None]
  - BALANCE DISORDER [None]
  - DIZZINESS [None]
